FAERS Safety Report 13296302 (Version 1)
Quarter: 2017Q1

REPORT INFORMATION
  Report Type: Spontaneous
  Country: HU (occurrence: HU)
  Receive Date: 20170304
  Receipt Date: 20170304
  Transmission Date: 20170428
  Serious: Yes (Other)
  Sender: FDA-Public Use
  Company Number: HU-AMGEN-HUNSP2017031299

PATIENT
  Age: 82 Year
  Sex: Female

DRUGS (18)
  1. BETALOC [Concomitant]
     Active Substance: METOPROLOL TARTRATE
     Dosage: 50 MG, BID
  2. VITAMIN C [Concomitant]
     Active Substance: ASCORBIC ACID
     Dosage: UNK
  3. FURON [Concomitant]
     Active Substance: FUROSEMIDE
     Dosage: 40 MG, QD
  4. KALDYUM [Concomitant]
     Active Substance: POTASSIUM CHLORIDE
     Dosage: 600 MG, UNK
  5. MEZITAN [Concomitant]
     Dosage: 35 MG, BID
  6. VITAMIN D [Concomitant]
     Active Substance: CHOLECALCIFEROL
     Dosage: UNK
  7. CITAPRAM [Concomitant]
     Dosage: 20 MG, QD (EVERY EVENING)
  8. BRINALDIX [Concomitant]
     Dosage: 10 MG, QD
  9. MILURIT [Concomitant]
     Active Substance: ALLOPURINOL
     Dosage: UNK UNK, QD
  10. OLICARD [Concomitant]
     Active Substance: ISOSORBIDE MONONITRATE
     Dosage: 40 MG, QD
  11. COVEREX [Concomitant]
     Dosage: 5 MG, (HALF TABLET)
  12. FRONTIN [Concomitant]
     Active Substance: ALPRAZOLAM
     Dosage: 0.25 MG, QID
  13. PANTOPRAZOL [Concomitant]
     Active Substance: PANTOPRAZOLE SODIUM
     Dosage: 1 DF, QD (EVERY EVENING)
  14. SERMION [Concomitant]
     Active Substance: NICERGOLINE
     Dosage: UNK UNK, BID
  15. PROLIA [Suspect]
     Active Substance: DENOSUMAB
     Indication: OSTEOPOROTIC FRACTURE
     Dosage: 60 MG, Q6MO
     Route: 058
     Dates: start: 2015
  16. ASPIRIN. [Concomitant]
     Active Substance: ASPIRIN
     Dosage: 100 MG, QD
  17. BETAHISTIN [Concomitant]
     Dosage: 24 MG, QD
  18. NEO FERRO FOLGAMMA [Concomitant]
     Dosage: UNK

REACTIONS (1)
  - Osteonecrosis of jaw [Unknown]

NARRATIVE: CASE EVENT DATE: 201604
